FAERS Safety Report 13479644 (Version 4)
Quarter: 2018Q1

REPORT INFORMATION
  Report Type: Report from Study
  Country: US (occurrence: US)
  Receive Date: 20170424
  Receipt Date: 20180117
  Transmission Date: 20180508
  Serious: No
  Sender: FDA-Public Use
  Company Number: US-AMGEN-USASL2017031375

PATIENT
  Age: 65 Year
  Sex: Female

DRUGS (2)
  1. REPATHA [Suspect]
     Active Substance: EVOLOCUMAB
     Indication: BLOOD CHOLESTEROL INCREASED
     Dosage: 140 MG, Q2WK
     Route: 065
  2. REPATHA [Suspect]
     Active Substance: EVOLOCUMAB
     Indication: LOW DENSITY LIPOPROTEIN INCREASED

REACTIONS (12)
  - Chest discomfort [Unknown]
  - Hypertension [Unknown]
  - Muscle spasms [Unknown]
  - Rhinorrhoea [Unknown]
  - Malaise [Unknown]
  - Back pain [Unknown]
  - Dyspnoea exertional [Unknown]
  - Chest pain [Unknown]
  - Wheezing [Unknown]
  - Cough [Unknown]
  - Influenza like illness [Unknown]
  - Musculoskeletal pain [Unknown]
